FAERS Safety Report 17734925 (Version 2)
Quarter: 2022Q3

REPORT INFORMATION
  Report Type: Spontaneous
  Country: US (occurrence: US)
  Receive Date: 20200501
  Receipt Date: 20220719
  Transmission Date: 20221027
  Serious: Yes (Other)
  Sender: FDA-Public Use
  Company Number: US-PERRIGO-20US006018

PATIENT
  Sex: Male

DRUGS (7)
  1. PREVACID 24 HR [Suspect]
     Active Substance: LANSOPRAZOLE
     Indication: Gastrooesophageal reflux disease
     Dosage: 15 MG, QD
     Route: 065
     Dates: start: 2012, end: 2017
  2. PREVACID [Suspect]
     Active Substance: LANSOPRAZOLE
     Indication: Gastrooesophageal reflux disease
     Dosage: 30 MG, QD
     Route: 065
     Dates: start: 20070322
  3. PREVACID [Suspect]
     Active Substance: LANSOPRAZOLE
     Indication: Gastrooesophageal reflux disease
  4. LANSOPRAZOLE [Suspect]
     Active Substance: LANSOPRAZOLE
     Indication: Gastrooesophageal reflux disease
     Dosage: 30 MG, QD
     Route: 065
     Dates: start: 20020322, end: 20091228
  5. PANTOPRAZOLE [Suspect]
     Active Substance: PANTOPRAZOLE
     Indication: Gastrooesophageal reflux disease
     Dosage: 40 MG,QD
     Route: 065
     Dates: start: 20070103, end: 20110204
  6. OMEPRAZOLE [Suspect]
     Active Substance: OMEPRAZOLE
     Indication: Gastrooesophageal reflux disease
     Dosage: 20 MG, QD
     Route: 065
     Dates: start: 20070222, end: 20151124
  7. PRILOSEC [Suspect]
     Active Substance: OMEPRAZOLE MAGNESIUM
     Indication: Gastrooesophageal reflux disease
     Dosage: UNK
     Route: 065
     Dates: start: 2017

REACTIONS (20)
  - Acute kidney injury [Unknown]
  - Chronic kidney disease [Unknown]
  - End stage renal disease [Unknown]
  - Cardiorenal syndrome [Unknown]
  - Hypertensive nephropathy [Unknown]
  - Intercapillary glomerulosclerosis [Unknown]
  - Diabetic nephropathy [Unknown]
  - Urine output decreased [Unknown]
  - Renal cyst [Unknown]
  - Nocturia [Unknown]
  - Nephrogenic anaemia [Unknown]
  - Renal mass [Unknown]
  - Renal failure [Unknown]
  - Urinary retention [Unknown]
  - Renal impairment [Unknown]
  - Renal artery arteriosclerosis [Unknown]
  - Proteinuria [Unknown]
  - Haematuria [Unknown]
  - Dialysis [Not Recovered/Not Resolved]
  - Haemodialysis [Unknown]
